FAERS Safety Report 17278145 (Version 1)
Quarter: 2020Q1

REPORT INFORMATION
  Report Type: Spontaneous
  Country: CA (occurrence: CA)
  Receive Date: 20200116
  Receipt Date: 20200116
  Transmission Date: 20200409
  Serious: Yes (Disabling)
  Sender: FDA-Public Use
  Company Number: None

PATIENT
  Age: 50 Year
  Sex: Female
  Weight: 51.75 kg

DRUGS (3)
  1. WELLBUTRIN [Concomitant]
     Active Substance: BUPROPION HYDROCHLORIDE
  2. AIMOVIG [Suspect]
     Active Substance: ERENUMAB-AOOE
     Indication: MIGRAINE
     Dosage: ?          OTHER FREQUENCY:MONTHLY;OTHER ROUTE:INJECTION IN STOMACH?
     Dates: start: 20190415, end: 20190620
  3. MAGNESIUM [Concomitant]
     Active Substance: MAGNESIUM

REACTIONS (31)
  - Paraesthesia [None]
  - Disturbance in attention [None]
  - Joint stiffness [None]
  - Irritability [None]
  - Weight increased [None]
  - Alopecia [None]
  - Dizziness [None]
  - Arthralgia [None]
  - Amnesia [None]
  - Respiratory tract congestion [None]
  - Abdominal distension [None]
  - Constipation [None]
  - Panic attack [None]
  - Pain in extremity [None]
  - Muscle spasms [None]
  - Palpitations [None]
  - Dyspnoea [None]
  - Influenza [None]
  - Depression [None]
  - Vision blurred [None]
  - Rash [None]
  - Nasopharyngitis [None]
  - Anxiety [None]
  - Fatigue [None]
  - Cognitive disorder [None]
  - Feeling abnormal [None]
  - Tinnitus [None]
  - Hypoaesthesia [None]
  - Insomnia [None]
  - Nightmare [None]
  - Mood swings [None]

NARRATIVE: CASE EVENT DATE: 20190617
